FAERS Safety Report 8714465 (Version 2)
Quarter: 2012Q4

REPORT INFORMATION
  Report Type: 
  Country: US (occurrence: US)
  Receive Date: 20120809
  Receipt Date: 20120828
  Transmission Date: 20130627
  Serious: No
  Sender: FDA-Public Use
  Company Number: US-PFIZER INC-2012192332

PATIENT
  Age: 27 Year
  Sex: Male
  Weight: 99.77 kg

DRUGS (1)
  1. GEODON [Suspect]
     Dosage: 20 mg, 2x/day
     Route: 048
     Dates: start: 2012, end: 20120805

REACTIONS (2)
  - Withdrawal syndrome [Not Recovered/Not Resolved]
  - General physical health deterioration [Not Recovered/Not Resolved]
